FAERS Safety Report 21388536 (Version 1)
Quarter: 2022Q3

REPORT INFORMATION
  Report Type: Spontaneous
  Country: US (occurrence: None)
  Receive Date: 20220928
  Receipt Date: 20220928
  Transmission Date: 20221027
  Serious: Yes (Other)
  Sender: FDA-Public Use
  Company Number: US-ROCHE-3189157

PATIENT
  Age: 48 Year
  Sex: Female
  Weight: 45.400 kg

DRUGS (2)
  1. XELODA [Suspect]
     Active Substance: CAPECITABINE
     Indication: Breast cancer metastatic
     Dosage: NO
     Route: 065
     Dates: start: 202208
  2. TOPOTECAN [Concomitant]
     Active Substance: TOPOTECAN HYDROCHLORIDE
     Route: 037

REACTIONS (1)
  - Posterior reversible encephalopathy syndrome [Recovering/Resolving]
